FAERS Safety Report 9116393 (Version 1)
Quarter: 2013Q1

REPORT INFORMATION
  Report Type: Report from Study
  Country: US (occurrence: US)
  Receive Date: 20130225
  Receipt Date: 20130225
  Transmission Date: 20140127
  Serious: Yes (Life-Threatening, Hospitalization)
  Sender: FDA-Public Use
  Company Number: US-009507513-1302USA009032

PATIENT
  Age: 42 Year
  Sex: Male
  Weight: 85.8 kg

DRUGS (14)
  1. VORINOSTAT [Suspect]
     Indication: DIFFUSE LARGE B-CELL LYMPHOMA
     Dosage: 400 MG, QD, CYCLE 4 OF 21 DAYS CYCLE ON DAYS 1-5
     Route: 048
     Dates: start: 20130109, end: 20130113
  2. VORINOSTAT [Suspect]
     Dosage: 400 MG, QD, CYCLE 1 OF 21 DAYS CYCLE ON DAYS 1-5
     Dates: start: 20121105, end: 20121109
  3. CYCLOPHOSPHAMIDE [Suspect]
     Dosage: 750 MG/M2, UNK, CYCLE 4 OF 21 DAYS CYCLE ON DAY 3
     Route: 042
     Dates: start: 20130111, end: 20130111
  4. CYCLOPHOSPHAMIDE [Suspect]
     Dosage: 750 MG/M2, UNK, CYCLE 1 OF 21 DAYS CYCLE ON DAY 3
     Route: 042
     Dates: start: 20121107, end: 20121107
  5. DOXORUBICIN HYDROCHLORIDE [Suspect]
     Dosage: 50 MG/M2, UNK, CYCLE 4 OF 21 DAYS CYCLE ON DAY 3
     Route: 042
     Dates: start: 20130111, end: 20130111
  6. DOXORUBICIN HYDROCHLORIDE [Suspect]
     Dosage: 50 MG/M2, UNK, CYCLE 1 OF 21 DAYS CYCLE ON DAY 3
     Route: 042
     Dates: start: 20121107, end: 20121107
  7. PREDNISONE [Suspect]
     Dosage: 100 MG, QD, CYCLE 4 OF 21 DAYS CYCLE ON DAY 3-7
     Route: 048
     Dates: start: 20130111, end: 20130115
  8. PREDNISONE [Suspect]
     Dosage: 100 MG, QD, CYCLE 1 OF 21 DAYS CYCLE ON DAY 3-7
     Route: 048
     Dates: start: 20121107, end: 20121111
  9. RITUXIMAB [Suspect]
     Dosage: 375 MG/M2, UNK, CYCLE 4 OF 21 DAYS CYCLE ON DAY 3
     Route: 042
     Dates: start: 20130111, end: 20130111
  10. RITUXIMAB [Suspect]
     Dosage: 375 MG/M2, UNK, CYCLE 1 OF 21 DAYS CYCLE ON DAY 3
     Route: 042
     Dates: start: 20121107, end: 20121107
  11. VINCRISTINE SULFATE [Suspect]
     Dosage: 1.4 MG/M2, UNK, CYCLE 4 OF 21 DAYS CYCLE ON DAY 3
     Route: 042
     Dates: start: 20130111, end: 20130111
  12. VINCRISTINE SULFATE [Suspect]
     Dosage: 1.4 MG/M2, UNK, CYCLE 1 OF 21 DAYS CYCLE ON DAY 3
     Route: 042
     Dates: start: 20121107, end: 20121107
  13. NEULASTA [Concomitant]
     Dosage: UNK
     Dates: start: 20130112
  14. NEUPOGEN [Concomitant]
     Dosage: UNK
     Dates: start: 20130129

REACTIONS (2)
  - Neutrophil count decreased [Recovered/Resolved]
  - Lung infection [Recovered/Resolved]
